FAERS Safety Report 15344247 (Version 3)
Quarter: 2018Q4

REPORT INFORMATION
  Report Type: Spontaneous
  Country: US (occurrence: US)
  Receive Date: 20180903
  Receipt Date: 20181015
  Transmission Date: 20190204
  Serious: Yes (Other)
  Sender: FDA-Public Use
  Company Number: US-PFIZER INC-2018354473

PATIENT
  Age: 44 Year
  Sex: Female
  Weight: 47.17 kg

DRUGS (2)
  1. LYRICA [Suspect]
     Active Substance: PREGABALIN
     Dosage: 50 MG, 2X/DAY
     Route: 048
     Dates: end: 20180725
  2. LYRICA [Suspect]
     Active Substance: PREGABALIN
     Dosage: 150 MG CAPSULE TWICE A DAY BY MOUTH
     Route: 048

REACTIONS (9)
  - Formication [Unknown]
  - Drug withdrawal syndrome [Unknown]
  - Fatigue [Unknown]
  - Pain [Unknown]
  - Headache [Unknown]
  - Depression [Unknown]
  - Neuropathy peripheral [Unknown]
  - Cold sweat [Unknown]
  - Anxiety [Unknown]
